FAERS Safety Report 4687612-5 (Version None)
Quarter: 2005Q2

REPORT INFORMATION
  Report Type: 
  Country: None (occurrence: None)
  Receive Date: 20050610
  Receipt Date: 20031211
  Transmission Date: 20051028
  Serious: Yes (Death, Hospitalization)
  Sender: FDA-Public Use
  Company Number: JP-JNJFOC-20050600339

PATIENT
  Sex: Male
  Weight: 55.85 kg

DRUGS (1)
  1. REMICADE [Suspect]
     Indication: CROHN'S DISEASE
     Route: 042

REACTIONS (3)
  - COLON CANCER [None]
  - DRUG INEFFECTIVE [None]
  - PERITONEAL CARCINOMA [None]
